FAERS Safety Report 17450690 (Version 1)
Quarter: 2020Q1

REPORT INFORMATION
  Report Type: Spontaneous
  Country: US (occurrence: US)
  Receive Date: 20200222
  Receipt Date: 20200222
  Transmission Date: 20200409
  Serious: No
  Sender: FDA-Public Use
  Company Number: None

PATIENT
  Age: 27 Year
  Sex: Male
  Weight: 105.75 kg

DRUGS (3)
  1. PAROXETINE 40MGS [Suspect]
     Active Substance: PAROXETINE HYDROCHLORIDE HEMIHYDRATE
     Indication: DEPRESSION
     Dosage: ?          QUANTITY:1 TABLET(S);?
     Route: 048
     Dates: start: 20181031, end: 20200216
  2. MULTIVITAMIN CENTRUM [Concomitant]
  3. ATENOLOL 25MGS [Concomitant]

REACTIONS (6)
  - Withdrawal syndrome [None]
  - Serotonin syndrome [None]
  - Nightmare [None]
  - Paraesthesia [None]
  - Palpitations [None]
  - Anxiety [None]

NARRATIVE: CASE EVENT DATE: 20200217
